FAERS Safety Report 5402776-3 (Version None)
Quarter: 2007Q3

REPORT INFORMATION
  Report Type: 
  Country: None (occurrence: None)
  Receive Date: 20070730
  Receipt Date: 20070719
  Transmission Date: 20080115
  Serious: Yes (Hospitalization, Other)
  Sender: FDA-Public Use
  Company Number: 016303

PATIENT
  Age: 50 Year
  Sex: Female

DRUGS (1)
  1. CENESTIN [Suspect]
     Indication: MENOPAUSAL DISORDER
     Dosage: 0.625 MG, QD; ORAL
     Route: 048
     Dates: start: 20000101, end: 20060101

REACTIONS (5)
  - ADENOCARCINOMA PANCREAS [None]
  - CONDITION AGGRAVATED [None]
  - OESTROGEN RECEPTOR ASSAY POSITIVE [None]
  - PANCREATIC CYST [None]
  - PROGESTERONE RECEPTOR ASSAY POSITIVE [None]
